FAERS Safety Report 16408681 (Version 1)
Quarter: 2019Q2

REPORT INFORMATION
  Report Type: Spontaneous
  Country: US (occurrence: US)
  Receive Date: 20190610
  Receipt Date: 20190610
  Transmission Date: 20190711
  Serious: No
  Sender: FDA-Public Use
  Company Number: US-ASTRAZENECA-2019SE77962

PATIENT
  Sex: Female
  Weight: 74.8 kg

DRUGS (13)
  1. LEVOTHYROXINE. [Concomitant]
     Active Substance: LEVOTHYROXINE
  2. RANITIDINE. [Concomitant]
     Active Substance: RANITIDINE
  3. DOK STOOL SOFTNER [Concomitant]
  4. BABY ASPIRIN [Concomitant]
     Active Substance: ASPIRIN
  5. GLIMEPIRIDE. [Concomitant]
     Active Substance: GLIMEPIRIDE
  6. FUROSEMIDE. [Concomitant]
     Active Substance: FUROSEMIDE
  7. OMEPRAZOLE. [Suspect]
     Active Substance: OMEPRAZOLE
     Route: 048
  8. MIRTIZAPINE [Concomitant]
     Dosage: 15 MG HALF TABLET TAKEN TWICE DAILY.
  9. BRILINTA [Suspect]
     Active Substance: TICAGRELOR
     Route: 048
     Dates: start: 20190514
  10. OXYBUTYNIN. [Concomitant]
     Active Substance: OXYBUTYNIN CHLORIDE
  11. CARTIA XT [Concomitant]
     Active Substance: DILTIAZEM HYDROCHLORIDE
  12. ENAPRIL [Concomitant]
     Active Substance: ENALAPRIL
  13. LEVEMIR [Concomitant]
     Active Substance: INSULIN DETEMIR
     Indication: BLOOD GLUCOSE ABNORMAL

REACTIONS (2)
  - Haematochezia [Recovering/Resolving]
  - Constipation [Unknown]
